FAERS Safety Report 25147072 (Version 1)
Quarter: 2025Q2

REPORT INFORMATION
  Report Type: Spontaneous
  Country: PL (occurrence: PL)
  Receive Date: 20250401
  Receipt Date: 20250401
  Transmission Date: 20250716
  Serious: Yes (Other)
  Sender: NOVARTIS
  Company Number: PL-002147023-NVSC2025PL050401

PATIENT
  Age: 62 Year
  Sex: Male

DRUGS (1)
  1. NILOTINIB [Suspect]
     Active Substance: NILOTINIB
     Indication: Chronic myeloid leukaemia
     Dosage: UNK, QD (2X400MG/DAILY)
     Route: 065
     Dates: start: 202107, end: 202111

REACTIONS (4)
  - Thrombocytopenia [Unknown]
  - Haematotoxicity [Unknown]
  - Drug intolerance [Unknown]
  - Drug resistance [Unknown]
